FAERS Safety Report 13902275 (Version 1)
Quarter: 2017Q3

REPORT INFORMATION
  Report Type: Spontaneous
  Country: GB (occurrence: GB)
  Receive Date: 20170824
  Receipt Date: 20170824
  Transmission Date: 20171127
  Serious: Yes (Other)
  Sender: FDA-Public Use
  Company Number: GB-ACCORD-057499

PATIENT
  Age: 73 Year
  Sex: Female

DRUGS (4)
  1. BISOPROLOL [Concomitant]
     Active Substance: BISOPROLOL
  2. ACETYLSALICYLIC ACID [Concomitant]
     Active Substance: ASPIRIN
  3. FUROSEMIDE. [Suspect]
     Active Substance: FUROSEMIDE
     Indication: MYOCARDIAL INFARCTION
     Dates: start: 20160822
  4. CLOPIDOGREL [Concomitant]
     Active Substance: CLOPIDOGREL BISULFATE

REACTIONS (9)
  - Cold sweat [Not Recovered/Not Resolved]
  - Dehydration [Not Recovered/Not Resolved]
  - Paraesthesia [Not Recovered/Not Resolved]
  - Oropharyngeal pain [Not Recovered/Not Resolved]
  - Feeling hot [Not Recovered/Not Resolved]
  - Nausea [Not Recovered/Not Resolved]
  - Glossodynia [Not Recovered/Not Resolved]
  - Sensory loss [Not Recovered/Not Resolved]
  - Muscle spasms [Not Recovered/Not Resolved]
